FAERS Safety Report 5315154-2 (Version None)
Quarter: 2007Q3

REPORT INFORMATION
  Report Type: 
  Country: None (occurrence: None)
  Receive Date: 20070502
  Receipt Date: 20070420
  Transmission Date: 20080115
  Serious: Yes (Other)
  Sender: FDA-Public Use
  Company Number: US-PFIZER INC-2007030487

PATIENT
  Sex: Female

DRUGS (6)
  1. DILANTIN [Suspect]
     Indication: CONVULSION
     Dates: end: 20050801
  2. DEPO-PROVERA SUSPENSION/INJ [Suspect]
     Indication: MENORRHAGIA
     Dates: end: 20070101
  3. KLONOPIN [Concomitant]
  4. TEGRETOL [Concomitant]
     Indication: CONVULSION
  5. TOPAMAX [Concomitant]
     Indication: CONVULSION
  6. GEODON [Concomitant]
     Indication: CONVULSION

REACTIONS (7)
  - ABDOMINAL PAIN [None]
  - ALOPECIA [None]
  - AMENORRHOEA [None]
  - IRRITABLE BOWEL SYNDROME [None]
  - MENORRHAGIA [None]
  - PELVIC PAIN [None]
  - WEIGHT INCREASED [None]
